FAERS Safety Report 6776723-6 (Version None)
Quarter: 2010Q2

REPORT INFORMATION
  Report Type: 
  Country: None (occurrence: None)
  Receive Date: 20100617
  Receipt Date: 20100617
  Transmission Date: 20101027
  Serious: Yes (Hospitalization)
  Sender: FDA-Public Use
  Company Number: None

PATIENT
  Sex: Male
  Weight: 107 kg

DRUGS (5)
  1. BELATACEPT 250 MG (25 MG/ML) BRISTOL-MYERS SQUIBB [Suspect]
     Indication: IMMUNOSUPPRESSION
     Dosage: 5 MG/KG
     Dates: start: 20100212
  2. RAPAMUNE [Concomitant]
  3. LISINOPRIL [Concomitant]
  4. PRAVACHOL [Concomitant]
  5. METOPROLOL [Concomitant]

REACTIONS (4)
  - CHILLS [None]
  - COLITIS [None]
  - INFLAMMATION [None]
  - PYREXIA [None]
